FAERS Safety Report 11905633 (Version 2)
Quarter: 2016Q1

REPORT INFORMATION
  Report Type: Report from Study
  Country: US (occurrence: US)
  Receive Date: 20160109
  Receipt Date: 20160302
  Transmission Date: 20160526
  Serious: Yes (Death, Other)
  Sender: FDA-Public Use
  Company Number: US-AMGEN-USASL2016000815

PATIENT
  Age: 75 Year
  Sex: Male
  Weight: 52.15 kg

DRUGS (1)
  1. PROLIA [Suspect]
     Active Substance: DENOSUMAB
     Indication: OSTEOPOROSIS
     Dosage: 60 MG, Q6MO
     Route: 058
     Dates: start: 20120606, end: 20140816

REACTIONS (2)
  - Respiratory failure [Fatal]
  - Chronic obstructive pulmonary disease [Unknown]
